FAERS Safety Report 21539676 (Version 1)
Quarter: 2022Q4

REPORT INFORMATION
  Report Type: Report from Study
  Country: US (occurrence: US)
  Receive Date: 20221102
  Receipt Date: 20221102
  Transmission Date: 20230113
  Serious: Yes (Other)
  Sender: FDA-Public Use
  Company Number: US-BRISTOL-MYERS SQUIBB COMPANY-2022-128888

PATIENT
  Age: 67 Year
  Sex: Female
  Weight: 73.94 kg

DRUGS (5)
  1. REVLIMID [Suspect]
     Active Substance: LENALIDOMIDE
     Indication: B-cell lymphoma
     Dosage: ONCE DAILY FOR 21DAYS
     Route: 048
     Dates: start: 20220713
  2. ASPIRIN [Concomitant]
     Active Substance: ASPIRIN
  3. LACTASE [Concomitant]
     Active Substance: LACTASE
     Dosage: LACTAID FAST ACT 9000 UN
  4. MELOXICAM [Concomitant]
     Active Substance: MELOXICAM
  5. VITAMINS NOS [Concomitant]
     Active Substance: VITAMINS

REACTIONS (2)
  - Avulsion fracture [Unknown]
  - Fall [Unknown]
